FAERS Safety Report 15232368 (Version 10)
Quarter: 2021Q3

REPORT INFORMATION
  Report Type: Report from Study
  Country: CA (occurrence: CA)
  Receive Date: 20180802
  Receipt Date: 20210923
  Transmission Date: 20211014
  Serious: Yes (Other)
  Sender: FDA-Public Use
  Company Number: CA-TAKEDA-2018TUS005971

PATIENT
  Age: 66 Year
  Sex: Male

DRUGS (12)
  1. VEDOLIZUMAB [Suspect]
     Active Substance: VEDOLIZUMAB
     Indication: COLITIS ULCERATIVE
     Dosage: 300 MILLIGRAM
     Route: 042
     Dates: start: 20180222
  2. VITAMIN D NOS [Concomitant]
     Active Substance: VITAMIN D NOS
     Dosage: UNK UNK, BID
  3. VEDOLIZUMAB [Suspect]
     Active Substance: VEDOLIZUMAB
     Dosage: 300 MILLIGRAM
     Route: 042
  4. VEDOLIZUMAB [Suspect]
     Active Substance: VEDOLIZUMAB
     Dosage: 300 MILLIGRAM
     Route: 042
  5. VEDOLIZUMAB [Suspect]
     Active Substance: VEDOLIZUMAB
     Dosage: 300 MILLIGRAM
     Route: 042
  6. COLD?FX [Concomitant]
     Active Substance: PANAX QUINQUEFOLIUS WHOLE
     Dosage: UNK
  7. VEDOLIZUMAB [Suspect]
     Active Substance: VEDOLIZUMAB
     Dosage: 300 MILLIGRAM
     Route: 042
  8. MEZAVANT [Concomitant]
     Active Substance: MESALAMINE
     Dosage: 1.2 MILLIGRAM, QD
  9. VEDOLIZUMAB [Suspect]
     Active Substance: VEDOLIZUMAB
     Dosage: 300 MILLIGRAM
     Route: 042
  10. VEDOLIZUMAB [Suspect]
     Active Substance: VEDOLIZUMAB
     Dosage: 300 MILLIGRAM
     Route: 042
  11. VEDOLIZUMAB [Suspect]
     Active Substance: VEDOLIZUMAB
     Dosage: 300 MILLIGRAM
     Route: 042
  12. VEDOLIZUMAB [Suspect]
     Active Substance: VEDOLIZUMAB
     Dosage: 300 MILLIGRAM
     Route: 042

REACTIONS (26)
  - Syncope [Recovered/Resolved]
  - Dysuria [Unknown]
  - Myalgia [Unknown]
  - Dyspnoea [Unknown]
  - Vomiting [Unknown]
  - Umbilical hernia [Unknown]
  - Nausea [Unknown]
  - Pain [Unknown]
  - Asthenia [Unknown]
  - Blood pressure increased [Unknown]
  - Abdominal distension [Unknown]
  - Anosmia [Unknown]
  - Abdominal pain [Unknown]
  - Malaise [Unknown]
  - Rhinorrhoea [Unknown]
  - Rash pruritic [Unknown]
  - Fatigue [Unknown]
  - Coronary artery disease [Not Recovered/Not Resolved]
  - Pruritus [Unknown]
  - Cough [Unknown]
  - Chills [Unknown]
  - Electrocardiogram abnormal [Not Recovered/Not Resolved]
  - Ageusia [Unknown]
  - Aortic aneurysm [Unknown]
  - Hyperhidrosis [Unknown]
  - Oropharyngeal pain [Unknown]

NARRATIVE: CASE EVENT DATE: 2018
